FAERS Safety Report 9608735 (Version 2)
Quarter: 2013Q4

REPORT INFORMATION
  Report Type: Report from Study
  Country: JP (occurrence: JP)
  Receive Date: 20131009
  Receipt Date: 20131227
  Transmission Date: 20140711
  Serious: Yes (Hospitalization)
  Sender: FDA-Public Use
  Company Number: JP-AMGEN-JPNCT2013069628

PATIENT
  Age: 81 Year
  Sex: Male
  Weight: 89 kg

DRUGS (20)
  1. DARBEPOETIN ALFA [Suspect]
     Indication: NEPHROGENIC ANAEMIA
     Dosage: 10 MUG, Q2WK
     Route: 042
     Dates: start: 20110915
  2. GASTER                             /00706001/ [Concomitant]
     Dosage: UNK
     Route: 048
  3. LIPITOR [Concomitant]
     Dosage: UNK
     Route: 048
  4. SIGMART [Concomitant]
     Dosage: UNK
     Route: 048
  5. SELBEX [Concomitant]
     Dosage: UNK
     Route: 048
  6. PANALDINE [Concomitant]
     Dosage: UNK
     Route: 048
  7. SODIUM BICARBONATE [Concomitant]
     Dosage: UNK
     Route: 048
  8. WARFARIN [Concomitant]
     Dosage: UNK
     Route: 048
  9. NU-LOTAN [Concomitant]
     Dosage: UNK
     Route: 048
  10. THYRADIN S [Concomitant]
     Dosage: UNK
     Route: 048
  11. EPADEL-S [Concomitant]
     Dosage: UNK
     Route: 048
  12. ZYLORIC [Concomitant]
     Dosage: UNK
     Route: 048
  13. KIPRES [Concomitant]
     Dosage: UNK
     Route: 048
  14. THEODUR [Concomitant]
     Dosage: UNK
     Route: 048
  15. MERISLON [Concomitant]
     Dosage: UNK
     Route: 048
  16. ADETPHOS [Concomitant]
     Dosage: UNK
     Route: 048
  17. ADOAIR [Concomitant]
     Dosage: UNK
     Route: 048
  18. FEBURIC [Concomitant]
     Dosage: UNK
     Route: 048
  19. DIOVAN [Concomitant]
     Dosage: UNK
     Route: 048
  20. FUROSEMIDE [Concomitant]
     Indication: GLOMERULONEPHRITIS CHRONIC
     Dosage: UNK
     Route: 048

REACTIONS (1)
  - Pneumonia [Recovered/Resolved]
